FAERS Safety Report 8380959-0 (Version None)
Quarter: 2012Q2

REPORT INFORMATION
  Report Type: 
  Country: None (occurrence: None)
  Receive Date: 20120523
  Receipt Date: 20120517
  Transmission Date: 20120825
  Serious: Yes (Hospitalization, Other)
  Sender: FDA-Public Use
  Company Number: US-ALEXION-A201200999

PATIENT
  Sex: Male
  Weight: 110 kg

DRUGS (28)
  1. FOLIC ACID [Concomitant]
     Dosage: 1 MG, QD
     Route: 048
     Dates: start: 20110615
  2. DILAUDID [Concomitant]
     Dosage: 8 MG, TID
     Route: 048
     Dates: start: 20120216
  3. ALLOPURINOL [Concomitant]
     Dosage: 100 MG, QD
     Route: 048
     Dates: start: 20111018
  4. PROSCAR [Concomitant]
     Dosage: 5 MG, QD
     Route: 048
     Dates: start: 20101210
  5. PROGRAF [Concomitant]
     Dosage: 15 MG, QD
     Route: 048
     Dates: start: 20120403
  6. ARANESP [Concomitant]
     Dosage: 100 MCG QW INJECTION
     Dates: start: 20120216
  7. MARINOL [Concomitant]
     Dosage: 2.5 MG, TID
     Dates: start: 20120426
  8. LIDODERM [Concomitant]
     Dosage: ON FOR 12 HOURS, OFF FOR 12 HOURS AS NEEDED DAILY
     Route: 062
     Dates: start: 20110615
  9. DOLOPHINE HYDROCHLORIDE [Concomitant]
     Dosage: 12.5 MG, BID
     Route: 048
     Dates: start: 20110401
  10. PRILOSEC [Concomitant]
     Dosage: 20 MG, BID
     Route: 048
     Dates: start: 20101011
  11. ZOFRAN [Concomitant]
     Dosage: 8 MG, QID
     Route: 048
     Dates: start: 20110615
  12. SENOKOT [Concomitant]
     Dosage: 1 TWICE DAILY
     Dates: start: 20120216
  13. SOLIRIS [Suspect]
     Indication: ANTIPHOSPHOLIPID SYNDROME
     Dosage: 1200 MG, UNK
     Route: 042
     Dates: start: 20100201
  14. FLORINEF ACETATE [Concomitant]
     Dosage: 0.1 MG, QD
     Dates: start: 20120216
  15. PREDNISONE [Concomitant]
     Dosage: 5 MG, QD
     Route: 048
     Dates: start: 20111018
  16. CELLCEPT [Suspect]
     Indication: PROPHYLAXIS AGAINST TRANSPLANT REJECTION
     Dosage: 1000 MG, BID
     Route: 048
     Dates: start: 20100218
  17. CALCIUM CARBONATE [Concomitant]
     Indication: SUPPLEMENTATION THERAPY
     Dosage: 1950 MG, QID
     Route: 048
     Dates: start: 20120216
  18. TOPROL-XL [Concomitant]
     Indication: SUPRAVENTRICULAR TACHYCARDIA
     Dosage: 25 MG, QD
     Dates: start: 20120217
  19. ASPIRIN [Concomitant]
     Dosage: 325 MG, QD
     Route: 048
     Dates: start: 20110101
  20. CLARITIN [Concomitant]
     Dosage: 10 MG, PRN
     Route: 048
     Dates: start: 20120403
  21. REGLAN [Concomitant]
     Dosage: 5 MG, QID (BEFORE MEALS AND AT BEDTIME)
     Route: 048
     Dates: start: 20120120
  22. SOLIRIS [Suspect]
     Dosage: 900 MG, Q2W
     Route: 042
  23. KYTRIL [Concomitant]
     Dosage: 3.1 MG, QW
     Route: 062
     Dates: start: 20120426
  24. NOVOLOG [Concomitant]
     Dosage: BEFORE MEALS AND AT BEDTIME PER SLIDING SCALE
     Route: 058
     Dates: start: 20100517
  25. PROAMATINE [Concomitant]
     Dosage: 5 MG, TID
     Route: 048
     Dates: start: 20120120
  26. COLACE [Concomitant]
     Dosage: 100 MG, BID
     Dates: start: 20120216
  27. FLOMAX [Concomitant]
     Dosage: 0.4 MG, QD
     Route: 048
     Dates: start: 20120224
  28. COUMADIN [Concomitant]
     Dosage: 7.5 MG, QD
     Route: 048
     Dates: start: 20120216

REACTIONS (3)
  - HERPES ZOSTER [None]
  - BRONCHOPULMONARY ASPERGILLOSIS [None]
  - POST HERPETIC NEURALGIA [None]
